FAERS Safety Report 19620711 (Version 1)
Quarter: 2021Q3

REPORT INFORMATION
  Report Type: Spontaneous
  Country: US (occurrence: US)
  Receive Date: 20210727
  Receipt Date: 20210727
  Transmission Date: 20211014
  Serious: Yes (Hospitalization)
  Sender: FDA-Public Use
  Company Number: None

PATIENT
  Age: 30 Year
  Sex: Male
  Weight: 112.9 kg

DRUGS (6)
  1. METHOTREXATE. [Suspect]
     Active Substance: METHOTREXATE
     Dates: end: 20210623
  2. CYCLOPHOSPHAMIDE. [Suspect]
     Active Substance: CYCLOPHOSPHAMIDE
     Dates: end: 20210630
  3. CYTARABINE. [Suspect]
     Active Substance: CYTARABINE
     Dates: end: 20210710
  4. MERCAPTOPURINE. [Suspect]
     Active Substance: MERCAPTOPURINE
     Dates: end: 20210713
  5. VINCRISTINE SULFATE. [Suspect]
     Active Substance: VINCRISTINE SULFATE
     Dates: end: 20210721
  6. ONCASPAR [Suspect]
     Active Substance: PEGASPARGASE
     Dates: end: 20210716

REACTIONS (13)
  - Chills [None]
  - Vomiting [None]
  - Diarrhoea [None]
  - Pancytopenia [None]
  - Blood lactic acid increased [None]
  - Cough [None]
  - Abdominal pain [None]
  - Pyrexia [None]
  - Clostridium test positive [None]
  - Nausea [None]
  - Large intestine infection [None]
  - Blood glucose increased [None]
  - Arthralgia [None]

NARRATIVE: CASE EVENT DATE: 20210725
